FAERS Safety Report 8617927 (Version 2)
Quarter: 2012Q4

REPORT INFORMATION
  Report Type: 
  Country: AT (occurrence: AT)
  Receive Date: 20120615
  Receipt Date: 20120915
  Transmission Date: 20130627
  Serious: Yes (Hospitalization)
  Sender: FDA-Public Use
  Company Number: AT-ABBOTT-12P-009-0944045-00

PATIENT
  Age: 53 Year
  Sex: Male

DRUGS (1)
  1. HUMIRA 40 MG/ 0.8 ML PRE-FILLED SYRINGE [Suspect]
     Indication: PSORIATIC ARTHROPATHY
     Route: 058
     Dates: start: 200802, end: 201112

REACTIONS (3)
  - Ileus [Recovered/Resolved]
  - Laparotomy [Recovered/Resolved]
  - Short-bowel syndrome [Not Recovered/Not Resolved]
